FAERS Safety Report 9895643 (Version 2)
Quarter: 2014Q1

REPORT INFORMATION
  Report Type: Spontaneous
  Country: US (occurrence: US)
  Receive Date: 20140213
  Receipt Date: 20140213
  Transmission Date: 20141002
  Serious: No
  Sender: FDA-Public Use
  Company Number: US-BRISTOL-MYERS SQUIBB COMPANY-18729251

PATIENT
  Age: 62 Year
  Sex: Female
  Weight: 65.76 kg

DRUGS (3)
  1. ABATACEPT SUBQ INJECTION 125MG/ML [Suspect]
     Indication: RHEUMATOID ARTHRITIS
     Dosage: RECENT DOSE:28MAR2013,APR2013EXP:APR2014. RESTARTED ON 10SE13
     Route: 058
     Dates: start: 201208
  2. PLAQUENIL [Suspect]
  3. METHOTREXATE [Suspect]

REACTIONS (2)
  - Rash [Not Recovered/Not Resolved]
  - Wrong technique in drug usage process [Unknown]
